FAERS Safety Report 18231361 (Version 2)
Quarter: 2020Q3

REPORT INFORMATION
  Report Type: Report from Study
  Country: None (occurrence: US)
  Receive Date: 20200904
  Receipt Date: 20200917
  Transmission Date: 20201103
  Serious: Yes (Other)
  Sender: FDA-Public Use
  Company Number: US-ABBVIE-20K-163-3553273-00

PATIENT
  Age: 48 Year
  Sex: Female

DRUGS (2)
  1. RINVOQ [Suspect]
     Active Substance: UPADACITINIB
     Route: 048
     Dates: start: 202008, end: 2020
  2. RINVOQ [Suspect]
     Active Substance: UPADACITINIB
     Indication: RHEUMATOID ARTHRITIS
     Route: 048

REACTIONS (8)
  - Fatigue [Not Recovered/Not Resolved]
  - Arthralgia [Unknown]
  - Surgery [Unknown]
  - Neck pain [Not Recovered/Not Resolved]
  - Nausea [Unknown]
  - Chest pain [Unknown]
  - Road traffic accident [Unknown]
  - Presyncope [Unknown]

NARRATIVE: CASE EVENT DATE: 202008
